FAERS Safety Report 10613946 (Version 3)
Quarter: 2014Q4

REPORT INFORMATION
  Report Type: Spontaneous
  Country: US (occurrence: US)
  Receive Date: 20141128
  Receipt Date: 20141222
  Transmission Date: 20150529
  Serious: No
  Sender: FDA-Public Use
  Company Number: US-GLAXOSMITHKLINE-A1074231A

PATIENT

DRUGS (3)
  1. WELLBUTRIN SR [Suspect]
     Active Substance: BUPROPION HYDROCHLORIDE
     Indication: PRODUCT USED FOR UNKNOWN INDICATION
     Dosage: 150 MG SINCE 10 JUNE 2009;200 MG SINCE 20 MARCH 2012
     Dates: start: 20090610
  2. PAXIL CR MODIFIED-RELEASE TABLET [Concomitant]
     Dates: start: 20090423
  3. WELLBUTRIN XL PROLONGED-RELEASE TABLET [Concomitant]
     Dates: start: 20070611

REACTIONS (3)
  - Depressed mood [Not Recovered/Not Resolved]
  - Drug dose omission [Not Recovered/Not Resolved]
  - Stress [Not Recovered/Not Resolved]

NARRATIVE: CASE EVENT DATE: 201405
